FAERS Safety Report 10200265 (Version 1)
Quarter: 2014Q2

REPORT INFORMATION
  Report Type: Spontaneous
  Country: US (occurrence: US)
  Receive Date: 20140527
  Receipt Date: 20140527
  Transmission Date: 20141212
  Serious: No
  Sender: FDA-Public Use
  Company Number: -SAAVPROD-CAMP-1003047

PATIENT
  Age: 62 Year
  Sex: Male

DRUGS (9)
  1. ALEMTUZUMAB [Suspect]
     Indication: LYMPHOPROLIFERATIVE DISORDER
     Dosage: 3 MG, UNK
     Route: 065
     Dates: start: 20130722, end: 20130722
  2. ALEMTUZUMAB [Suspect]
     Indication: LYMPHOPROLIFERATIVE DISORDER
     Dosage: 3 MG, UNK
     Route: 065
     Dates: start: 20130724, end: 20130724
  3. SODIUM CHLORIDE [Concomitant]
     Indication: PRODUCT USED FOR UNKNOWN INDICATION
     Dosage: 1000 ML, UNK
     Route: 065
     Dates: start: 20130722, end: 20130722
  4. SODIUM CHLORIDE [Concomitant]
     Indication: PRODUCT USED FOR UNKNOWN INDICATION
     Dosage: 1000 ML, UNK
     Route: 065
     Dates: start: 20130724, end: 20130724
  5. PETHIDINE HYDROCHLORIDE [Concomitant]
     Indication: PREMEDICATION
     Dosage: 25 MG, UNK
     Route: 065
     Dates: start: 201307, end: 201307
  6. PARACETAMOL [Concomitant]
     Indication: PREMEDICATION
     Dosage: 1 G, UNK
     Route: 065
     Dates: start: 20130722, end: 20130722
  7. PARACETAMOL [Concomitant]
     Indication: PREMEDICATION
     Dosage: 1 G, UNK
     Route: 065
     Dates: start: 20130724, end: 20130724
  8. DIPHENHYDRAMINE [Concomitant]
     Indication: PREMEDICATION
     Dosage: 50 MG, UNK
     Route: 065
     Dates: start: 20130722, end: 20130722
  9. DIPHENHYDRAMINE [Concomitant]
     Indication: PREMEDICATION
     Dosage: 50 MG, UNK
     Route: 065
     Dates: start: 20130724, end: 20130724

REACTIONS (3)
  - Pyrexia [Recovered/Resolved]
  - Chills [Recovered/Resolved]
  - Vomiting [Recovered/Resolved]
